FAERS Safety Report 18223326 (Version 2)
Quarter: 2020Q4

REPORT INFORMATION
  Report Type: Spontaneous
  Country: US (occurrence: US)
  Receive Date: 20200902
  Receipt Date: 20201006
  Transmission Date: 20210113
  Serious: Yes (Hospitalization, Other)
  Sender: FDA-Public Use
  Company Number: US-GLAXOSMITHKLINE-US2020AMR174211

PATIENT
  Sex: Female

DRUGS (2)
  1. ZEJULA [Suspect]
     Active Substance: NIRAPARIB
     Dosage: 100 MG, QD
     Route: 048
  2. ZEJULA [Suspect]
     Active Substance: NIRAPARIB
     Indication: OVARIAN CANCER
     Dosage: 200 MG, QD
     Route: 065
     Dates: start: 20200805

REACTIONS (10)
  - Dry mouth [Unknown]
  - Abdominal discomfort [Unknown]
  - Stomatitis [Unknown]
  - Condition aggravated [Unknown]
  - Constipation [Unknown]
  - Tumour marker increased [Recovering/Resolving]
  - Peripheral swelling [Unknown]
  - Dyspnoea exertional [Unknown]
  - Product dose omission issue [Unknown]
  - Ascites [Unknown]
